FAERS Safety Report 6825835-7 (Version None)
Quarter: 2010Q3

REPORT INFORMATION
  Report Type: 
  Country: None (occurrence: None)
  Receive Date: 20100708
  Receipt Date: 20100708
  Transmission Date: 20110219
  Serious: Yes (Other)
  Sender: FDA-Public Use
  Company Number: None

PATIENT
  Sex: Male
  Weight: 34.927 kg

DRUGS (1)
  1. ONDANSETRON GENERIC FOR ZOFRAN [Suspect]
     Indication: VOMITING
     Dosage: 4 MG EVERY 12 HRS TABLET
     Dates: start: 20100624

REACTIONS (3)
  - DIARRHOEA [None]
  - DYSURIA [None]
  - VOMITING [None]
